FAERS Safety Report 4952968-2 (Version None)
Quarter: 2006Q1

REPORT INFORMATION
  Report Type: 
  Country: None (occurrence: None)
  Receive Date: 20060324
  Receipt Date: 20060314
  Transmission Date: 20060701
  Serious: Yes (Other)
  Sender: FDA-Public Use
  Company Number: BR-BRISTOL-MYERS SQUIBB COMPANY-13316245

PATIENT
  Age: 77 Year
  Sex: Male
  Weight: 75 kg

DRUGS (1)
  1. MAXIPIME [Suspect]
     Indication: URINARY TRACT INFECTION
     Route: 042
     Dates: start: 20060307, end: 20060311

REACTIONS (2)
  - DISORIENTATION [None]
  - HALLUCINATION [None]
